FAERS Safety Report 13235840 (Version 1)
Quarter: 2017Q1

REPORT INFORMATION
  Report Type: Spontaneous
  Country: RO (occurrence: RO)
  Receive Date: 20170215
  Receipt Date: 20170215
  Transmission Date: 20170428
  Serious: Yes (Hospitalization, Other)
  Sender: FDA-Public Use
  Company Number: RO-PFIZER INC-2017064897

PATIENT
  Age: 59 Year
  Sex: Male
  Weight: 63 kg

DRUGS (6)
  1. SUTENT [Suspect]
     Active Substance: SUNITINIB MALATE
     Dosage: UNK, 1X/DAY, NOON
  2. HELIDES [Concomitant]
     Dosage: 20 MG, 1X/DAY, MORNING
  3. MILURIT [Concomitant]
     Active Substance: ALLOPURINOL
     Dosage: 300 MG, 2X/DAY, MORNING AND EVENING
  4. FERROGRADUMET [Concomitant]
     Dosage: UNK, 2X/DAY, MORNING AND EVENING
  5. DIUREX [Concomitant]
     Active Substance: AMILORIDE HYDROCHLORIDE\HYDROCHLOROTHIAZIDE
     Dosage: 20/50 MG, 1X/DAY, MORNING
  6. PROSTOP ACTIV [Concomitant]
     Dosage: UNK, 2X/DAY, MORNING AND EVENING

REACTIONS (5)
  - Tooth abscess [Unknown]
  - Pyrexia [Unknown]
  - Sepsis [Unknown]
  - Aphthous ulcer [Unknown]
  - Oral pain [Unknown]

NARRATIVE: CASE EVENT DATE: 20170206
